FAERS Safety Report 6832812-9 (Version None)
Quarter: 2010Q3

REPORT INFORMATION
  Report Type: 
  Country: None (occurrence: None)
  Receive Date: 20100712
  Receipt Date: 20070322
  Transmission Date: 20110219
  Serious: No
  Sender: FDA-Public Use
  Company Number: US-PFIZER INC-2007023737

PATIENT
  Sex: Male
  Weight: 97.52 kg

DRUGS (5)
  1. CHANTIX [Suspect]
     Indication: SMOKING CESSATION THERAPY
     Dates: start: 20070315
  2. ABILIFY [Concomitant]
  3. DEPAKOTE [Concomitant]
  4. LEXAPRO [Concomitant]
  5. FOCALIN [Concomitant]

REACTIONS (4)
  - CONSTIPATION [None]
  - INSOMNIA [None]
  - NAUSEA [None]
  - VOMITING [None]
